FAERS Safety Report 24724565 (Version 3)
Quarter: 2025Q3

REPORT INFORMATION
  Report Type: Report from Study
  Country: TR (occurrence: TR)
  Receive Date: 20241212
  Receipt Date: 20250803
  Transmission Date: 20251021
  Serious: Yes (Hospitalization)
  Sender: ALEXION PHARMACEUTICALS
  Company Number: TR-ASTRAZENECA-202412TUR004224TR

PATIENT
  Sex: Female
  Weight: 66 kg

DRUGS (2)
  1. SOLIRIS [Suspect]
     Active Substance: ECULIZUMAB
     Indication: Myasthenia gravis
     Dosage: 900 MILLIGRAM, QW
     Dates: start: 20241127
  2. CORTISONE [Suspect]
     Active Substance: CORTISONE
     Route: 065

REACTIONS (3)
  - Osteoporosis [Unknown]
  - Back pain [Unknown]
  - Aphasia [Unknown]
